FAERS Safety Report 7475234-2 (Version None)
Quarter: 2011Q1

REPORT INFORMATION
  Report Type: 
  Country: None (occurrence: None)
  Receive Date: 20110302
  Receipt Date: 20101201
  Transmission Date: 20110831
  Serious: Yes (Disabling)
  Sender: FDA-Public Use
  Company Number: 163-21880-10110752

PATIENT
  Age: 76 Year
  Sex: Male

DRUGS (3)
  1. REVLIMID [Suspect]
  2. REVLIMID [Suspect]
     Indication: MULTIPLE MYELOMA
     Dosage: 25 MG, DAILY FOR 21 DAYS, PO; 5 MG, DAILY FOR 21 DAYS, PO
     Route: 048
     Dates: start: 20100819, end: 20100101
  3. ASPIRIN [Concomitant]

REACTIONS (6)
  - JOINT SWELLING [None]
  - ARTHRALGIA [None]
  - PYREXIA [None]
  - ASTHENIA [None]
  - OEDEMA PERIPHERAL [None]
  - CONSTIPATION [None]
